FAERS Safety Report 9067344 (Version 1)
Quarter: 2013Q1

REPORT INFORMATION
  Report Type: Report from Study
  Country: US (occurrence: US)
  Receive Date: 20130128
  Receipt Date: 20130128
  Transmission Date: 20140127
  Serious: Yes (Other)
  Sender: FDA-Public Use
  Company Number: US-ABBOTT-11P-163-0870513-00

PATIENT
  Sex: Female
  Weight: 118.04 kg

DRUGS (14)
  1. HUMIRA 40 MG/ 0.8 ML PRE-FILLED SYRINGE [Suspect]
     Indication: PSORIASIS
     Dates: start: 20091001, end: 2010
  2. HUMIRA 40 MG/ 0.8 ML PRE-FILLED SYRINGE [Suspect]
     Dates: start: 2010
  3. POTASSIUM [Concomitant]
     Indication: ELECTROLYTE SUBSTITUTION THERAPY
  4. CALCIUM [Concomitant]
     Indication: MINERAL SUPPLEMENTATION
  5. FISH OIL [Concomitant]
     Indication: MINERAL SUPPLEMENTATION
  6. HYDROCODONE [Concomitant]
     Indication: BACK PAIN
     Dosage: 5/500 AT NIGHT
     Route: 048
  7. SAVELLA [Concomitant]
     Indication: FIBROMYALGIA
     Route: 048
  8. LYRICA [Concomitant]
     Indication: FIBROMYALGIA
     Route: 048
  9. CELEBREX [Concomitant]
     Indication: ARTHRITIS
     Dates: start: 200902
  10. PRAVACHOL [Concomitant]
     Indication: BLOOD CHOLESTEROL INCREASED
  11. PRAVASTATIN [Concomitant]
     Indication: BLOOD CHOLESTEROL INCREASED
  12. VANOS [Concomitant]
     Indication: PSORIASIS
  13. TMC 1% [Concomitant]
     Indication: PSORIASIS
  14. TOPICORT [Concomitant]
     Indication: PSORIASIS

REACTIONS (8)
  - Cholecystitis [Unknown]
  - Swelling [Unknown]
  - Gastrooesophageal reflux disease [Unknown]
  - Drug ineffective [Unknown]
  - Diabetes mellitus inadequate control [Unknown]
  - Cyst [Unknown]
  - Impaired healing [Not Recovered/Not Resolved]
  - Hypertension [Not Recovered/Not Resolved]
